FAERS Safety Report 15338283 (Version 1)
Quarter: 2018Q3

REPORT INFORMATION
  Report Type: Spontaneous
  Country: US (occurrence: US)
  Receive Date: 20180831
  Receipt Date: 20180831
  Transmission Date: 20181010
  Serious: Yes (Other)
  Sender: FDA-Public Use
  Company Number: US-CIPLA LTD.-2018US20947

PATIENT

DRUGS (2)
  1. GABAPENTIN. [Suspect]
     Active Substance: GABAPENTIN
     Indication: NEURALGIA
     Dosage: UNK
     Route: 065
  2. GABAPENTIN. [Suspect]
     Active Substance: GABAPENTIN
     Indication: HEADACHE
     Dosage: 300 MG, UNK
     Route: 048

REACTIONS (9)
  - Drug ineffective [Unknown]
  - Somnolence [Unknown]
  - Dizziness [Unknown]
  - Nausea [Unknown]
  - Seizure [Unknown]
  - Fall [Unknown]
  - Fatigue [Unknown]
  - Tooth fracture [Recovered/Resolved]
  - Product substitution issue [Unknown]
